FAERS Safety Report 24717157 (Version 1)
Quarter: 2024Q4

REPORT INFORMATION
  Report Type: Spontaneous
  Country: US (occurrence: US)
  Receive Date: 20241210
  Receipt Date: 20241210
  Transmission Date: 20250114
  Serious: No
  Sender: BAYER HEALTHCARE LLC
  Company Number: US-BAYER-2024A174572

PATIENT
  Age: 72 Year
  Sex: Male

DRUGS (1)
  1. MIRALAX [Suspect]
     Active Substance: POLYETHYLENE GLYCOL 3350
     Indication: Product used for unknown indication
     Dosage: I TOOK THE HALF OF THE PACKET
     Route: 048
     Dates: start: 20241209, end: 20241209

REACTIONS (3)
  - Product contamination physical [None]
  - Incorrect dose administered [None]
  - Poor quality product administered [None]

NARRATIVE: CASE EVENT DATE: 20241209
